FAERS Safety Report 4982016-X (Version None)
Quarter: 2006Q2

REPORT INFORMATION
  Report Type: 
  Country: None (occurrence: None)
  Receive Date: 20060425
  Receipt Date: 20060323
  Transmission Date: 20061013
  Serious: Yes (Other)
  Sender: FDA-Public Use
  Company Number: 2006CG00580

PATIENT
  Age: 267 Day
  Sex: Female
  Weight: 9.6 kg

DRUGS (3)
  1. NEXIUM [Suspect]
     Indication: OESOPHAGITIS
     Route: 048
     Dates: start: 20050910, end: 20060323
  2. NEXIUM [Suspect]
     Indication: GASTROOESOPHAGEAL REFLUX DISEASE
     Route: 048
     Dates: start: 20050910, end: 20060323
  3. MOPRAL [Concomitant]
     Route: 048
     Dates: start: 20050601, end: 20050901

REACTIONS (6)
  - DIARRHOEA HAEMORRHAGIC [None]
  - MILK ALLERGY [None]
  - STAPHYLOCOCCAL INFECTION [None]
  - SUPERINFECTION [None]
  - SYSTEMIC INFLAMMATORY RESPONSE SYNDROME [None]
  - WEIGHT GAIN POOR [None]
